FAERS Safety Report 6419951-1 (Version None)
Quarter: 2009Q4

REPORT INFORMATION
  Report Type: 
  Country: None (occurrence: None)
  Receive Date: 20091029
  Receipt Date: 20091026
  Transmission Date: 20100525
  Serious: Yes (Death, Life-Threatening, Hospitalization, Other)
  Sender: FDA-Public Use
  Company Number: FR-BRISTOL-MYERS SQUIBB COMPANY-14832273

PATIENT
  Age: 71 Year
  Sex: Female

DRUGS (8)
  1. APROVEL TABS 300 MG [Suspect]
     Indication: HYPERTENSION
  2. METFORMIN HCL [Suspect]
     Indication: TYPE 2 DIABETES MELLITUS
  3. LASILIX RETARD [Suspect]
     Indication: HYPERTENSION
  4. KARDEGIC [Concomitant]
  5. NOVOMIX [Concomitant]
     Dosage: 1 DF = NOVOMIX 30 FLEXPEN 100IU/ML 20 IU IN THE MORNING AND 18 IU IN THE EVENING
  6. TAHOR [Concomitant]
  7. CARVEDILOL [Concomitant]
  8. AMOXICILLIN [Concomitant]
     Dates: start: 20090728

REACTIONS (8)
  - ACIDOSIS [None]
  - ASTHENIA [None]
  - BRONCHITIS [None]
  - CARDIAC ARREST [None]
  - DEPRESSED LEVEL OF CONSCIOUSNESS [None]
  - DIARRHOEA [None]
  - HYPERKALAEMIA [None]
  - VOMITING [None]
